FAERS Safety Report 20664887 (Version 1)
Quarter: 2022Q2

REPORT INFORMATION
  Report Type: Spontaneous
  Country: BG (occurrence: BG)
  Receive Date: 20220401
  Receipt Date: 20220401
  Transmission Date: 20220720
  Serious: Yes (Other)
  Sender: FDA-Public Use
  Company Number: BG-ABBVIE-22K-022-4338707-00

PATIENT
  Age: 30 Year
  Sex: Male

DRUGS (4)
  1. VALPROATE SODIUM [Suspect]
     Active Substance: VALPROATE SODIUM
     Indication: Post-traumatic epilepsy
     Route: 065
  2. RIVAROXABAN [Suspect]
     Active Substance: RIVAROXABAN
     Indication: Pelvic venous thrombosis
     Dosage: 2 X 15 MG RIVAROXABAN  WAS STARTED FOR 21 DAYS
     Route: 065
  3. RIVAROXABAN [Suspect]
     Active Substance: RIVAROXABAN
     Route: 065
  4. DABIGATRAN [Suspect]
     Active Substance: DABIGATRAN
     Indication: Pelvic venous thrombosis
     Dosage: 2 X 150 MG
     Route: 065

REACTIONS (2)
  - Coagulation time shortened [Recovering/Resolving]
  - Anticoagulation drug level decreased [Recovering/Resolving]
